FAERS Safety Report 8457064-8 (Version None)
Quarter: 2012Q2

REPORT INFORMATION
  Report Type: 
  Country: None (occurrence: None)
  Receive Date: 20120621
  Receipt Date: 20120608
  Transmission Date: 20120825
  Serious: No
  Sender: FDA-Public Use
  Company Number: US-ASTRAZENECA-2012SE39001

PATIENT
  Age: 53 Year
  Sex: Female

DRUGS (3)
  1. NEURONTIN [Concomitant]
  2. NEXIUM [Suspect]
     Route: 048
  3. NAPROXEN (ALEVE) [Concomitant]

REACTIONS (5)
  - DRUG DOSE OMISSION [None]
  - MALAISE [None]
  - ULCER [None]
  - NAUSEA [None]
  - ABDOMINAL DISCOMFORT [None]
